FAERS Safety Report 21024627 (Version 3)
Quarter: 2022Q3

REPORT INFORMATION
  Report Type: Report from Study
  Country: GB (occurrence: GB)
  Receive Date: 20220629
  Receipt Date: 20220706
  Transmission Date: 20221027
  Serious: Yes (Hospitalization)
  Sender: FDA-Public Use
  Company Number: GB-LEO Pharma-343693

PATIENT
  Age: 42 Year
  Sex: Male

DRUGS (1)
  1. BRODALUMAB [Suspect]
     Active Substance: BRODALUMAB
     Indication: Psoriasis
     Dosage: 210MG WEEK 0, 1, 2 AND THEN EVERY TWO WEEKS (210 MG,1 IN 2 WK)
     Route: 058
     Dates: start: 20181026

REACTIONS (4)
  - Seizure [Unknown]
  - Depression [Unknown]
  - Psoriasis [Unknown]
  - Therapy interrupted [Not Recovered/Not Resolved]

NARRATIVE: CASE EVENT DATE: 20220601
